FAERS Safety Report 12545884 (Version 2)
Quarter: 2017Q2

REPORT INFORMATION
  Report Type: Spontaneous
  Country: US (occurrence: US)
  Receive Date: 20160711
  Receipt Date: 20170503
  Transmission Date: 20170830
  Serious: No
  Sender: FDA-Public Use
  Company Number: US-JNJFOC-20160621808

PATIENT
  Sex: Male

DRUGS (12)
  1. RISPERDAL [Suspect]
     Active Substance: RISPERIDONE
     Indication: AFFECTIVE DISORDER
     Dosage: 1 MG TO 2 MG
     Route: 048
     Dates: start: 2010, end: 201308
  2. RISPERDAL [Suspect]
     Active Substance: RISPERIDONE
     Indication: HALLUCINATION
     Route: 048
     Dates: end: 2013
  3. RISPERDAL [Suspect]
     Active Substance: RISPERIDONE
     Indication: DEPRESSION
     Dosage: 1 MG TO 2 MG
     Route: 048
     Dates: start: 2010, end: 201308
  4. RISPERDAL [Suspect]
     Active Substance: RISPERIDONE
     Indication: AGORAPHOBIA
     Route: 048
     Dates: end: 2013
  5. RISPERDAL [Suspect]
     Active Substance: RISPERIDONE
     Indication: AGORAPHOBIA
     Dosage: 1 MG TO 2 MG
     Route: 048
     Dates: start: 2010, end: 201308
  6. RISPERDAL [Suspect]
     Active Substance: RISPERIDONE
     Indication: POST-TRAUMATIC STRESS DISORDER
     Route: 048
     Dates: end: 2013
  7. RISPERDAL [Suspect]
     Active Substance: RISPERIDONE
     Indication: ANXIETY
     Route: 048
     Dates: end: 2013
  8. RISPERDAL [Suspect]
     Active Substance: RISPERIDONE
     Indication: ANXIETY
     Dosage: 1 MG TO 2 MG
     Route: 048
     Dates: start: 2010, end: 201308
  9. RISPERDAL [Suspect]
     Active Substance: RISPERIDONE
     Indication: HALLUCINATION
     Dosage: 1 MG TO 2 MG
     Route: 048
     Dates: start: 2010, end: 201308
  10. RISPERDAL [Suspect]
     Active Substance: RISPERIDONE
     Indication: AFFECTIVE DISORDER
     Route: 048
     Dates: end: 2013
  11. RISPERDAL [Suspect]
     Active Substance: RISPERIDONE
     Indication: POST-TRAUMATIC STRESS DISORDER
     Dosage: 1 MG TO 2 MG
     Route: 048
     Dates: start: 2010, end: 201308
  12. RISPERDAL [Suspect]
     Active Substance: RISPERIDONE
     Indication: DEPRESSION
     Route: 048
     Dates: end: 2013

REACTIONS (2)
  - Gynaecomastia [Unknown]
  - Abnormal weight gain [Unknown]

NARRATIVE: CASE EVENT DATE: 2012
